FAERS Safety Report 10042334 (Version 1)
Quarter: 2014Q1

REPORT INFORMATION
  Report Type: Spontaneous
  Country: US (occurrence: US)
  Receive Date: 20140327
  Receipt Date: 20140327
  Transmission Date: 20141002
  Serious: No
  Sender: FDA-Public Use
  Company Number: US-UPSHER-SMITH LABORATORIES, INC.-13003415

PATIENT
  Age: 58 Year
  Sex: Female

DRUGS (5)
  1. PROPRANOLOL HCL [Suspect]
     Indication: HYPERTENSION
     Dosage: 80 MG, QD
     Route: 048
     Dates: start: 2007
  2. ALPRAZOLAM [Concomitant]
     Dosage: UNK
  3. AMITRIPTYLENE [Concomitant]
     Dosage: UNK
  4. IMITREX                            /01044801/ [Concomitant]
     Dosage: UNK
  5. VICODIN [Concomitant]
     Dosage: UNK

REACTIONS (1)
  - Palpitations [Recovered/Resolved]
